FAERS Safety Report 19026441 (Version 1)
Quarter: 2021Q1

REPORT INFORMATION
  Report Type: Spontaneous
  Country: JP (occurrence: JP)
  Receive Date: 20210318
  Receipt Date: 20210318
  Transmission Date: 20210420
  Serious: Yes (Death, Other)
  Sender: FDA-Public Use
  Company Number: JP-MYLANLABS-2021M1015304

PATIENT
  Age: 3 Decade
  Sex: Female

DRUGS (1)
  1. ACICLOVIR MYLAN [Suspect]
     Active Substance: ACYCLOVIR
     Indication: PRODUCT USED FOR UNKNOWN INDICATION
     Dosage: 400 MILLIGRAM, QD
     Route: 048

REACTIONS (6)
  - Interstitial lung disease [Unknown]
  - Adverse drug reaction [Unknown]
  - Incorrect product administration duration [Unknown]
  - Death [Fatal]
  - Hepatic failure [Unknown]
  - Infection [Unknown]
